FAERS Safety Report 25529962 (Version 1)
Quarter: 2025Q3

REPORT INFORMATION
  Report Type: Spontaneous
  Country: GB (occurrence: GB)
  Receive Date: 20250708
  Receipt Date: 20250708
  Transmission Date: 20251021
  Serious: Yes (Other)
  Sender: BAYER HEALTHCARE PHARMACEUTICALS INC.
  Company Number: None

PATIENT
  Age: 66 Year
  Sex: Female
  Weight: 66 kg

DRUGS (1)
  1. GADOBUTROL [Suspect]
     Active Substance: GADOBUTROL
     Indication: Magnetic resonance imaging normal
     Dates: start: 20250702, end: 20250702

REACTIONS (6)
  - Anaphylactic reaction [Recovering/Resolving]
  - Cough [None]
  - Dyspnoea [None]
  - Aphasia [None]
  - Lip swelling [None]
  - Erythema [None]

NARRATIVE: CASE EVENT DATE: 20250702
